FAERS Safety Report 10946462 (Version 1)
Quarter: 2015Q1

REPORT INFORMATION
  Report Type: Spontaneous
  Country: US (occurrence: None)
  Receive Date: 20150226
  Receipt Date: 20150226
  Transmission Date: 20150721
  Serious: No
  Sender: FDA-Public Use
  Company Number: TPA2010A00585

PATIENT
  Age: 67 Year
  Sex: Male
  Weight: 86.18 kg

DRUGS (12)
  1. WARFARIN (WARFARIN) [Suspect]
     Active Substance: WARFARIN
     Indication: ATRIAL FIBRILLATION
     Route: 048
     Dates: start: 1995
  2. WELCHOL (COLESEVELAM HYDROCHLORIDE) (625 MILLIGRAM, TABLET) (COLESEVELAM HYDROCHLORIDE) [Concomitant]
     Active Substance: COLESEVELAM HYDROCHLORIDE
  3. ULORIC [Suspect]
     Active Substance: FEBUXOSTAT
     Indication: GOUT
     Route: 048
     Dates: start: 20091213
  4. COMPRESSED CHERRY JUICE TABLET (AL OTHER THERAPEUTIC PRODUCTS) [Concomitant]
  5. NAPROXEN. [Concomitant]
     Active Substance: NAPROXEN
  6. FINASTERIDE. [Concomitant]
     Active Substance: FINASTERIDE
  7. DILTIAZEM [Concomitant]
     Active Substance: DILTIAZEM
  8. UNSPECIFIED UROLOGIC MEDICATION (ALL OTHER THERAPEUTIC PRODUCTS) [Concomitant]
  9. WARFARIN (WARFARIN) [Suspect]
     Active Substance: WARFARIN
     Indication: ANTICOAGULANT THERAPY
     Route: 048
     Dates: start: 1995
  10. MULTIVITAMIN (ERGOCALCIFEROL, ASCORBIC ACID, FOLIC ACID, THIAMINE HYDROCHLORIDE, RETINOL, RIBOFLAVIN, NICOTINAMINE, PANTHENOL) [Concomitant]
  11. ZINC [Concomitant]
     Active Substance: ZINC\ZINC CHLORIDE
  12. COLCHICINE. [Concomitant]
     Active Substance: COLCHICINE

REACTIONS (5)
  - Haematuria [None]
  - Condition aggravated [None]
  - Renal cyst [None]
  - Tachycardia [None]
  - Gout [None]

NARRATIVE: CASE EVENT DATE: 20091213
